FAERS Safety Report 10197557 (Version 2)
Quarter: 2017Q1

REPORT INFORMATION
  Report Type: Spontaneous
  Country: US (occurrence: US)
  Receive Date: 20140527
  Receipt Date: 20170317
  Transmission Date: 20170428
  Serious: No
  Sender: FDA-Public Use
  Company Number: US-BAYER-2014-071511

PATIENT
  Age: 60 Year
  Sex: Female

DRUGS (24)
  1. BAYER ASPIRIN [Suspect]
     Active Substance: ASPIRIN
     Dosage: UNK
  2. ALBUTEROL SULFATE. [Concomitant]
     Active Substance: ALBUTEROL SULFATE
     Indication: WHEEZING
     Dosage: INHALE 2 PUFFS EVERY 4 HOURS AS NEEDED.
  3. PREGABALIN. [Concomitant]
     Active Substance: PREGABALIN
     Dosage: 1 DF, BID
     Route: 048
  4. SUMATRIPTAN SUCCINATE. [Concomitant]
     Active Substance: SUMATRIPTAN SUCCINATE
     Indication: MIGRAINE
     Dosage: 1 DF,ONCE, PRN
     Route: 048
  5. TRAZODONE HYDROCHLORIDE. [Concomitant]
     Active Substance: TRAZODONE HYDROCHLORIDE
     Dosage: 1 DF, QD
     Route: 048
  6. ALEVE [Suspect]
     Active Substance: NAPROXEN SODIUM
     Dosage: UNK
  7. BUTALBITAL, ACETAMINOPHEN, AND CAFFEINE [Concomitant]
     Active Substance: ACETAMINOPHEN\BUTALBITAL\CAFFEINE
     Indication: HEADACHE
     Dosage: 1 DF,BY MOUTH EVERY 4 HOURS, PRN
  8. DEXLANSOPRAZOLE [Concomitant]
     Active Substance: DEXLANSOPRAZOLE
     Dosage: 1 DF, UNK
     Route: 048
  9. CLARITIN-D 12 HOUR [Concomitant]
     Active Substance: LORATADINE\PSEUDOEPHEDRINE SULFATE
     Dosage: 1 DF, BID
     Route: 048
  10. AZELASTINE HYDROCHLORIDE. [Concomitant]
     Active Substance: AZELASTINE HYDROCHLORIDE
     Dosage: 2 SPRAYS BY NASAL ROUTE 2 TIMES DAILY. USE IN EACH NOSTRILES AS DIRECTED.
  11. OXYCODONE AND ACETAMINOPHEN [Concomitant]
     Active Substance: ACETAMINOPHEN\OXYCODONE HYDROCHLORIDE
     Indication: PAIN
     Dosage: 1 DF, EVERY 6 HOURS,PRN
  12. TOPIRAMATE. [Concomitant]
     Active Substance: TOPIRAMATE
     Dosage: 1 DF, BID
     Route: 048
  13. BACLOFEN. [Concomitant]
     Active Substance: BACLOFEN
     Dosage: 1 DF, UNK
     Route: 048
  14. OCEAN SALINE NASAL SPRAY [Concomitant]
     Active Substance: SODIUM CHLORIDE
     Dosage: UNK
  15. AMITRIPTYLINE HCL [Concomitant]
     Active Substance: AMITRIPTYLINE
     Dosage: 1 AT BEDTIME FOR ONE WEEK, THEN INCREASES TO 2 AT BEDTIME.
  16. VITAMIN B12 [Concomitant]
     Active Substance: CYANOCOBALAMIN
     Dosage: 1 ML INJECT EVERY 30 DAYS.
     Route: 030
  17. MULTIVITAMINS [Suspect]
     Active Substance: VITAMINS
     Dosage: UNK
     Route: 048
  18. FLAXSEED [Concomitant]
     Active Substance: FLAX SEED
     Dosage: UNK
     Route: 048
  19. LIDOCAINE. [Concomitant]
     Active Substance: LIDOCAINE
     Dosage: TWO TIMES
  20. BUTALBITAL, ACETAMINOPHEN, AND CAFFEINE [Concomitant]
     Active Substance: ACETAMINOPHEN\BUTALBITAL\CAFFEINE
     Indication: HEADACHE
     Dosage: 1 DF,BY MOUTH EVERY 4 HOURS, PRN
  21. PREGABALIN. [Concomitant]
     Active Substance: PREGABALIN
     Dosage: 1 UNK, BID
     Route: 048
  22. BENZONATATE. [Concomitant]
     Active Substance: BENZONATATE
     Indication: COUGH
     Dosage: BY MOUTH THREE TIMES DAILY, PRN
  23. FLUTICASONE PROPIONATE. [Concomitant]
     Active Substance: FLUTICASONE PROPIONATE
     Dosage: 2 SPRAYS DAILY
     Route: 045
  24. TOPIRAMATE. [Concomitant]
     Active Substance: TOPIRAMATE
     Dosage: 1 DF, BID
     Route: 048

REACTIONS (3)
  - Swollen tongue [Unknown]
  - Swelling [Unknown]
  - Drug hypersensitivity [Unknown]
